FAERS Safety Report 9561466 (Version 1)
Quarter: 2013Q3

REPORT INFORMATION
  Report Type: Spontaneous
  Country: US (occurrence: None)
  Receive Date: 20130821
  Receipt Date: 20130821
  Transmission Date: 20140515
  Serious: No
  Sender: FDA-Public Use
  Company Number: 1000046145

PATIENT
  Sex: 0

DRUGS (1)
  1. TUDORZA PRESSAIR [Suspect]
     Dosage: LOT # 1104102?EXP. DATE:  03/07/14

REACTIONS (1)
  - Drug ineffective [None]
